FAERS Safety Report 7146355-9 (Version None)
Quarter: 2010Q4

REPORT INFORMATION
  Report Type: 
  Country: None (occurrence: None)
  Receive Date: 20101208
  Receipt Date: 20101130
  Transmission Date: 20110411
  Serious: Yes (Disabling)
  Sender: FDA-Public Use
  Company Number: JP-CEPHALON-2010006333

PATIENT
  Sex: Female

DRUGS (9)
  1. MODAFINIL [Suspect]
     Indication: NARCOLEPSY
     Route: 048
     Dates: start: 20070618, end: 20070626
  2. MYSLEE [Concomitant]
     Dates: start: 20070203, end: 20070705
  3. BENZALIN [Concomitant]
     Dates: start: 20070226, end: 20090129
  4. AMOBAN [Concomitant]
     Dates: start: 20070317, end: 20070719
  5. ZOLOFT [Concomitant]
     Dates: start: 20070419, end: 20070702
  6. SERENACE [Concomitant]
     Dates: start: 20070625, end: 20070702
  7. SEROQUEL [Concomitant]
     Dates: start: 20070317, end: 20070719
  8. DEPAS [Concomitant]
     Dates: start: 20051022, end: 20070702
  9. TSUMURA-YOKUKANSAN [Concomitant]
     Dates: start: 20070413, end: 20070626

REACTIONS (1)
  - URINARY RETENTION [None]
